FAERS Safety Report 13307614 (Version 2)
Quarter: 2017Q2

REPORT INFORMATION
  Report Type: Spontaneous
  Country: US (occurrence: US)
  Receive Date: 20170308
  Receipt Date: 20170411
  Transmission Date: 20170830
  Serious: Yes (Other)
  Sender: FDA-Public Use
  Company Number: PHEH2017US005963

PATIENT
  Age: 14 Year
  Sex: Male

DRUGS (2)
  1. ZYKADIA [Suspect]
     Active Substance: CERITINIB
     Indication: ANAPLASTIC LYMPHOMA KINASE GENE MUTATION
  2. ZYKADIA [Suspect]
     Active Substance: CERITINIB
     Indication: INFLAMMATORY MYOFIBROBLASTIC TUMOUR
     Route: 065

REACTIONS (3)
  - Wrong technique in product usage process [Unknown]
  - Neoplasm progression [Unknown]
  - Mass [Unknown]
